FAERS Safety Report 23273289 (Version 1)
Quarter: 2023Q4

REPORT INFORMATION
  Report Type: Spontaneous
  Country: US (occurrence: None)
  Receive Date: 20231207
  Receipt Date: 20231207
  Transmission Date: 20240109
  Serious: Yes (Hospitalization)
  Sender: FDA-Public Use
  Company Number: None

PATIENT
  Sex: Female

DRUGS (3)
  1. TACROLIMUS [Suspect]
     Active Substance: TACROLIMUS
     Indication: Heart transplant
     Dosage: OTHER FREQUENCY : 1CAPAM2CAPEVENING ;?
     Route: 048
     Dates: start: 202002
  2. SIROLIMUS [Concomitant]
  3. MYCOPHENOLIC ACID DR [Concomitant]

REACTIONS (2)
  - Pyrexia [None]
  - Immunosuppression [None]
